FAERS Safety Report 7053407-0 (Version None)
Quarter: 2010Q4

REPORT INFORMATION
  Report Type: 
  Country: None (occurrence: None)
  Receive Date: 20101020
  Receipt Date: 20101015
  Transmission Date: 20110411
  Serious: Yes (Life-Threatening, Hospitalization, Other)
  Sender: FDA-Public Use
  Company Number: PHHY2010JP63898

PATIENT
  Age: 58 Year
  Sex: Female

DRUGS (13)
  1. SANDIMMUNE [Suspect]
     Indication: BONE MARROW TRANSPLANT
     Dosage: 3MG/KG/DAY
     Route: 042
     Dates: start: 20090101
  2. NEORAL [Suspect]
     Indication: APLASTIC ANAEMIA
     Route: 048
  3. NEORAL [Suspect]
     Dosage: 25 MG DAILY
     Route: 048
     Dates: end: 20090701
  4. THYMOGLOBULIN [Suspect]
     Indication: APLASTIC ANAEMIA
     Dosage: 2.5 MG/KG/DAY
  5. THYMOGLOBULIN [Suspect]
     Indication: BONE MARROW TRANSPLANT
  6. FLUDARABINE PHOSPHATE [Concomitant]
     Indication: BONE MARROW TRANSPLANT
     Dosage: 25 MG/M2, UNK
  7. CYCLOPHOSPHAMIDE [Concomitant]
     Indication: BONE MARROW TRANSPLANT
     Dosage: 750 MG/M2, UNK
  8. METHOTREXATE [Concomitant]
     Indication: BONE MARROW TRANSPLANT
  9. METHOTREXATE [Concomitant]
     Indication: PROPHYLAXIS AGAINST GRAFT VERSUS HOST DISEASE
  10. IRRADIATION [Concomitant]
     Dosage: 2 GY, UNK
  11. MINOCYCLINE HCL [Concomitant]
  12. CEFTAZIDIME [Concomitant]
  13. SULFAMETHOXAZOLE AND TRIMETHOPRIM [Concomitant]

REACTIONS (6)
  - CELLULITIS [None]
  - DRUG INEFFECTIVE [None]
  - ENGRAFT FAILURE [None]
  - ESCHERICHIA SEPSIS [None]
  - STEM CELL TRANSPLANT [None]
  - STENOTROPHOMONAS SEPSIS [None]
